FAERS Safety Report 6775102-5 (Version None)
Quarter: 2010Q2

REPORT INFORMATION
  Report Type: 
  Country: None (occurrence: None)
  Receive Date: 20100617
  Receipt Date: 20100610
  Transmission Date: 20101027
  Serious: Yes (Death)
  Sender: FDA-Public Use
  Company Number: B0661032A

PATIENT
  Sex: Male

DRUGS (1)
  1. SEROXAT [Suspect]
     Indication: OBSESSIVE-COMPULSIVE DISORDER
     Dosage: 40MG PER DAY
     Route: 065

REACTIONS (1)
  - COMPLETED SUICIDE [None]
